FAERS Safety Report 5648511-5 (Version None)
Quarter: 2008Q1

REPORT INFORMATION
  Report Type: 
  Country: None (occurrence: None)
  Receive Date: 20080229
  Receipt Date: 20080215
  Transmission Date: 20080703
  Serious: Yes (Other)
  Sender: FDA-Public Use
  Company Number: S08-FRA-00740-01

PATIENT
  Age: 26 Year
  Sex: Male

DRUGS (3)
  1. ESCITALOPRAM [Suspect]
     Indication: DEPRESSION
     Dosage: 10 MG QD PO
     Route: 048
  2. ESCITALOPRAM [Suspect]
     Indication: DEPRESSION
     Dosage: 5 MG QD PO
     Route: 048
  3. CLONAZEPAM [Concomitant]

REACTIONS (2)
  - GRAND MAL CONVULSION [None]
  - NO THERAPEUTIC RESPONSE [None]
